FAERS Safety Report 11794189 (Version 1)
Quarter: 2015Q4

REPORT INFORMATION
  Report Type: Spontaneous
  Country: US (occurrence: US)
  Receive Date: 20151202
  Receipt Date: 20151202
  Transmission Date: 20160305
  Serious: Yes (Hospitalization)
  Sender: FDA-Public Use
  Company Number: US-FRESENIUS KABI-FK201304291

PATIENT
  Age: 70 Year
  Sex: Male
  Weight: 75 kg

DRUGS (34)
  1. ATORVASTATIN [Concomitant]
     Active Substance: ATORVASTATIN
     Dates: start: 2003
  2. DEXAMETHASONE. [Concomitant]
     Active Substance: DEXAMETHASONE
     Dates: start: 201304
  3. ENOXAPARIN [Concomitant]
     Active Substance: ENOXAPARIN
     Dates: start: 201303
  4. ESOMEPRAZOLE [Concomitant]
     Active Substance: ESOMEPRAZOLE
     Dates: start: 2008
  5. LEVOTHYROXINE. [Concomitant]
     Active Substance: LEVOTHYROXINE
     Dates: start: 1968
  6. LUTEIN [Concomitant]
     Active Substance: LUTEIN
  7. DOXORUBICIN HYDROCHLORIDE INJECTION, USP [Suspect]
     Active Substance: DOXORUBICIN HYDROCHLORIDE
     Indication: SARCOMA METASTATIC
     Route: 065
     Dates: start: 20130404
  8. BISACODYL. [Concomitant]
     Active Substance: BISACODYL
     Dates: start: 201304
  9. MAGNESIUM CHLORIDE. [Concomitant]
     Active Substance: MAGNESIUM CHLORIDE
     Dates: start: 20130625
  10. MELOXICAM. [Concomitant]
     Active Substance: MELOXICAM
     Dates: start: 2005
  11. POLYETHYLENE GLYCOL [Concomitant]
     Active Substance: POLYETHYLENE GLYCOLS
     Dates: start: 201302
  12. PROCHLORPERAZINE. [Concomitant]
     Active Substance: PROCHLORPERAZINE
     Dates: start: 20130404
  13. ZOLPIDEM [Concomitant]
     Active Substance: ZOLPIDEM\ZOLPIDEM TARTRATE
     Dates: start: 2007
  14. MULTIVITAMINS [Concomitant]
     Active Substance: VITAMINS
     Dates: start: 1963
  15. TOCOPHEROL [Concomitant]
     Active Substance: TOCOPHEROL
  16. MS CONTIN [Concomitant]
     Active Substance: MORPHINE SULFATE
     Dates: start: 201304
  17. BETACAROTENE [Concomitant]
     Active Substance: .BETA.-CAROTENE
  18. ZINC [Concomitant]
     Active Substance: ZINC\ZINC CHLORIDE
  19. COPPER [Concomitant]
     Active Substance: COPPER
  20. MAGIC MOUTHWASH [Concomitant]
     Active Substance: DIPHENHYDRAMINE HYDROCHLORIDE\LIDOCAINE HYDROCHLORIDE\NYSTATIN
     Dates: start: 201304
  21. ACETAMINOPHEN. [Concomitant]
     Active Substance: ACETAMINOPHEN
  22. COENZYME Q10 [Concomitant]
     Active Substance: UBIDECARENONE
     Dates: start: 2005
  23. MIRTAZAPINE. [Concomitant]
     Active Substance: MIRTAZAPINE
     Dates: start: 20130522
  24. ONDANSETRON [Concomitant]
     Active Substance: ONDANSETRON
     Dates: start: 20130404
  25. SENOKOT-S [Concomitant]
     Active Substance: DOCUSATE SODIUM\SENNOSIDES
     Dates: start: 2013
  26. DOCUSATE SODIUM. [Concomitant]
     Active Substance: DOCUSATE SODIUM
     Dates: start: 201302
  27. ALPRAZOLAM. [Concomitant]
     Active Substance: ALPRAZOLAM
     Dates: start: 2009
  28. GABAPENTIN. [Concomitant]
     Active Substance: GABAPENTIN
     Dates: start: 20130404
  29. CETAPHIL [Concomitant]
     Active Substance: AVOBENZONE\OCTOCRYLENE\TRICLOSAN
     Dates: start: 20130626
  30. XANTOFYL [Concomitant]
  31. DOXORUBICIN HYDROCHLORIDE INJECTION, USP [Suspect]
     Active Substance: DOXORUBICIN HYDROCHLORIDE
     Route: 040
     Dates: start: 20130626, end: 20130626
  32. MSIR [Concomitant]
     Active Substance: MORPHINE SULFATE
     Dates: start: 201301
  33. TAMSULOSIN HYDROCHLORIDE. [Concomitant]
     Active Substance: TAMSULOSIN HYDROCHLORIDE
     Dates: start: 201304
  34. SELENIUM [Concomitant]
     Active Substance: SELENIUM

REACTIONS (1)
  - Systemic inflammatory response syndrome [Recovered/Resolved]

NARRATIVE: CASE EVENT DATE: 20130723
